FAERS Safety Report 19589904 (Version 2)
Quarter: 2021Q3

REPORT INFORMATION
  Report Type: Spontaneous
  Country: US (occurrence: US)
  Receive Date: 20210721
  Receipt Date: 20210812
  Transmission Date: 20211014
  Serious: Yes (Other)
  Sender: FDA-Public Use
  Company Number: US-PFIZER INC-2018524368

PATIENT
  Age: 77 Year
  Sex: Female

DRUGS (7)
  1. LYRICA [Suspect]
     Active Substance: PREGABALIN
     Indication: LUMBAR RADICULOPATHY
  2. AMITRIPTYLINE [Concomitant]
     Active Substance: AMITRIPTYLINE
     Dosage: 1 DF, EVERY THIRD DAY
     Dates: end: 201810
  3. AMITRIPTYLINE [Concomitant]
     Active Substance: AMITRIPTYLINE
     Indication: INSOMNIA
     Dosage: 2 DF, 1X/DAY (NIGHTLY; WEANED OFF)
     Route: 048
  4. AMITRIPTYLINE [Concomitant]
     Active Substance: AMITRIPTYLINE
     Dosage: 1 DF, 1X/DAY (EVERY NIGHT)
     Route: 048
  5. LYRICA [Suspect]
     Active Substance: PREGABALIN
     Indication: NEURALGIA
     Dosage: 100 MG, 2X/DAY (ONCE IN THE MORNING AFTER BREAKFAST AND ONCE AT DINNER)
     Route: 048
     Dates: start: 20170605
  6. AMITRIPTYLINE [Concomitant]
     Active Substance: AMITRIPTYLINE
     Dosage: 1 DF, ALTERNATE DAY (EVERY OTHER NIGHT)
  7. LYRICA [Suspect]
     Active Substance: PREGABALIN
     Indication: PERONEAL NERVE PALSY

REACTIONS (1)
  - Cerebral haemorrhage [Unknown]
